FAERS Safety Report 4597101-4 (Version None)
Quarter: 2005Q1

REPORT INFORMATION
  Report Type: 
  Country: None (occurrence: None)
  Receive Date: 20050302
  Receipt Date: 20041105
  Transmission Date: 20050727
  Serious: Yes (Hospitalization, Disabling, Other)
  Sender: FDA-Public Use
  Company Number: DE-MERCK-0411DEU00119

PATIENT
  Age: 60 Year
  Sex: Male
  Weight: 76 kg

DRUGS (3)
  1. VIOXX [Suspect]
     Route: 048
     Dates: start: 20000101
  2. ASPIRIN [Concomitant]
     Route: 048
     Dates: end: 20030301
  3. DICLOFENAC [Concomitant]
     Route: 065
     Dates: start: 20030201

REACTIONS (3)
  - CEREBROVASCULAR ACCIDENT [None]
  - EPIDIDYMITIS [None]
  - VERTIGO [None]
